FAERS Safety Report 7400922-3 (Version None)
Quarter: 2011Q2

REPORT INFORMATION
  Report Type: 
  Country: None (occurrence: None)
  Receive Date: 20110407
  Receipt Date: 20110329
  Transmission Date: 20111010
  Serious: Yes (Other)
  Sender: FDA-Public Use
  Company Number: CN-ASTRAZENECA-2011SE17723

PATIENT
  Age: 70 Year
  Sex: Female

DRUGS (1)
  1. PLENDIL [Suspect]
     Indication: HYPERTENSION
     Dosage: 2.5 MG PRESCRIBED BUT PATIENT TOOK 20 MG
     Route: 048
     Dates: start: 20110326, end: 20110326

REACTIONS (2)
  - OVERDOSE [None]
  - MENTAL DISORDER [None]
